FAERS Safety Report 15225418 (Version 1)
Quarter: 2018Q4

REPORT INFORMATION
  Report Type: Spontaneous
  Country: FR (occurrence: FR)
  Receive Date: 20180801
  Receipt Date: 20180801
  Transmission Date: 20190204
  Serious: Yes (Hospitalization)
  Sender: FDA-Public Use
  Company Number: FR-BIOVITRUM-2018FR0892

PATIENT
  Age: 29 Year
  Sex: Male
  Weight: 68 kg

DRUGS (6)
  1. KINERET [Suspect]
     Active Substance: ANAKINRA
     Route: 058
     Dates: start: 20180705, end: 20180711
  2. COLCHICINE OPOCALCIUM [Interacting]
     Active Substance: COLCHICINE
     Indication: STILL^S DISEASE
     Route: 048
     Dates: start: 20180619, end: 20180705
  3. ROACTEMRA [Interacting]
     Active Substance: TOCILIZUMAB
     Indication: STILL^S DISEASE
     Route: 041
     Dates: start: 20180619, end: 20180703
  4. KINERET [Suspect]
     Active Substance: ANAKINRA
     Indication: STILL^S DISEASE
     Route: 058
     Dates: start: 20180703, end: 20180704
  5. MALOCIDE (PYRIMETHAMINE) [Interacting]
     Active Substance: PYRIMETHAMINE
     Indication: STILL^S DISEASE
     Route: 048
     Dates: start: 20180619, end: 20180703
  6. ADIAZINE [Interacting]
     Active Substance: SULFADIAZINE
     Indication: STILL^S DISEASE
     Route: 048
     Dates: start: 20180619, end: 20180703

REACTIONS (2)
  - Agranulocytosis [Recovered/Resolved]
  - Neutropenia [Recovered/Resolved]

NARRATIVE: CASE EVENT DATE: 20180705
